FAERS Safety Report 5682751-4 (Version None)
Quarter: 2008Q1

REPORT INFORMATION
  Report Type: 
  Country: None (occurrence: None)
  Receive Date: 20080326
  Receipt Date: 20080326
  Transmission Date: 20080703
  Serious: Yes (Death, Life-Threatening, Disabling)
  Sender: FDA-Public Use
  Company Number: None

PATIENT
  Age: 44 Year
  Sex: Female
  Weight: 51 kg

DRUGS (4)
  1. ALTEPLASE [Suspect]
     Indication: CEREBROVASCULAR ACCIDENT
     Dosage: 47MG ONCE IV
     Route: 042
     Dates: start: 20080122, end: 20080122
  2. NAPROXEN [Concomitant]
  3. ACETAMINOPHEN [Concomitant]
  4. CEPHALEXIN [Concomitant]

REACTIONS (5)
  - CEREBRAL HAEMORRHAGE [None]
  - CONVULSION [None]
  - ELECTROENCEPHALOGRAM ABNORMAL [None]
  - ILL-DEFINED DISORDER [None]
  - RESPIRATORY FAILURE [None]
